FAERS Safety Report 16319557 (Version 1)
Quarter: 2019Q2

REPORT INFORMATION
  Report Type: Spontaneous
  Country: US (occurrence: US)
  Receive Date: 20190515
  Receipt Date: 20190515
  Transmission Date: 20190711
  Serious: Yes (Life-Threatening, Hospitalization, Other)
  Sender: FDA-Public Use
  Company Number: None

PATIENT
  Age: 38 Year
  Sex: Female
  Weight: 74.25 kg

DRUGS (1)
  1. ZUBSOLV [Suspect]
     Active Substance: BUPRENORPHINE HYDROCHLORIDE\NALOXONE HYDROCHLORIDE
     Indication: DRUG DEPENDENCE
     Route: 060
     Dates: start: 20190413, end: 20190506

REACTIONS (8)
  - Therapy change [None]
  - Withdrawal syndrome [None]
  - Therapeutic product effect incomplete [None]
  - Product substitution issue [None]
  - Myalgia [None]
  - Lethargy [None]
  - Drug dependence [None]
  - Insurance issue [None]

NARRATIVE: CASE EVENT DATE: 20190413
